FAERS Safety Report 6561821-2 (Version None)
Quarter: 2010Q1

REPORT INFORMATION
  Report Type: 
  Country: None (occurrence: None)
  Receive Date: 20100130
  Receipt Date: 20091029
  Transmission Date: 20100710
  Serious: No
  Sender: FDA-Public Use
  Company Number: US-ABBOTT-09P-163-0606456-00

PATIENT
  Sex: Female
  Weight: 78.542 kg

DRUGS (5)
  1. HUMIRA [Suspect]
     Indication: RHEUMATOID ARTHRITIS
     Dates: start: 20090601
  2. MYCARDIS [Concomitant]
     Indication: DRUG USE FOR UNKNOWN INDICATION
  3. BONIVA [Concomitant]
     Indication: DRUG USE FOR UNKNOWN INDICATION
  4. ALDACTONE [Concomitant]
     Indication: DRUG USE FOR UNKNOWN INDICATION
  5. SYNTHROID [Concomitant]
     Indication: DRUG USE FOR UNKNOWN INDICATION

REACTIONS (3)
  - BACK PAIN [None]
  - CHEST PAIN [None]
  - DYSPNOEA [None]
